FAERS Safety Report 18109472 (Version 2)
Quarter: 2020Q3

REPORT INFORMATION
  Report Type: Spontaneous
  Country: PL (occurrence: PL)
  Receive Date: 20200804
  Receipt Date: 20200825
  Transmission Date: 20201103
  Serious: Yes (Hospitalization, Other)
  Sender: FDA-Public Use
  Company Number: PL-MSNLABS-2020MSNLIT00211

PATIENT

DRUGS (11)
  1. ACYCLOVIR. [Suspect]
     Active Substance: ACYCLOVIR
     Indication: HAIRY CELL LEUKAEMIA
     Route: 042
  2. CYCLOPHOSPHAMIDE. [Suspect]
     Active Substance: CYCLOPHOSPHAMIDE
     Indication: HAIRY CELL LEUKAEMIA
     Route: 065
  3. VEMURAFENIB. [Suspect]
     Active Substance: VEMURAFENIB
     Indication: HAIRY CELL LEUKAEMIA
     Dosage: 20 WEEKS
     Route: 065
  4. PREGABALIN CAPSULES 75 MG [Suspect]
     Active Substance: PREGABALIN
     Indication: HAIRY CELL LEUKAEMIA
     Route: 065
  5. ANTITHYMOCYTE IMMUNOGLOBULIN [Suspect]
     Active Substance: THYMOCYTE IMMUNE GLOBULIN NOS
     Indication: HAIRY CELL LEUKAEMIA
     Route: 065
  6. METHOTREXATE. [Suspect]
     Active Substance: METHOTREXATE
     Indication: PROPHYLAXIS AGAINST GRAFT VERSUS HOST DISEASE
     Route: 065
  7. LEUSTAT [Suspect]
     Active Substance: CLADRIBINE
     Indication: HAIRY CELL LEUKAEMIA
     Dosage: FOR 5 CONSECUTIVE DAYS
     Route: 042
  8. BENDAMUSTINE [Suspect]
     Active Substance: BENDAMUSTINE
     Indication: HAIRY CELL LEUKAEMIA
     Route: 042
  9. CYCLOSPORINE. [Suspect]
     Active Substance: CYCLOSPORINE
     Indication: PROPHYLAXIS AGAINST GRAFT VERSUS HOST DISEASE
     Route: 065
  10. RITUXIMAB. [Suspect]
     Active Substance: RITUXIMAB
     Indication: HAIRY CELL LEUKAEMIA
     Route: 065
  11. INTERFERON ALFA?2A [Suspect]
     Active Substance: INTERFERON ALFA-2A
     Indication: HAIRY CELL LEUKAEMIA
     Route: 065

REACTIONS (6)
  - Protein total increased [Unknown]
  - Neuropathy peripheral [Unknown]
  - Nervous system disorder [None]
  - Neurological decompensation [None]
  - Behaviour disorder [Unknown]
  - Therapeutic product effect incomplete [None]
